FAERS Safety Report 16826643 (Version 5)
Quarter: 2019Q4

REPORT INFORMATION
  Report Type: Report from Study
  Country: US (occurrence: US)
  Receive Date: 20190919
  Receipt Date: 20191121
  Transmission Date: 20200122
  Serious: Yes (Hospitalization)
  Sender: FDA-Public Use
  Company Number: PHHO2019US009276

PATIENT
  Age: 51 Year
  Sex: Female
  Weight: 68.6 kg

DRUGS (57)
  1. CARAFATE [Concomitant]
     Active Substance: SUCRALFATE
     Indication: GASTROOESOPHAGEAL REFLUX DISEASE
     Dosage: UNK
     Route: 065
     Dates: start: 20180601, end: 20190906
  2. ZOFRAN [Concomitant]
     Active Substance: ONDANSETRON HYDROCHLORIDE
     Indication: NAUSEA
     Dosage: UNK
     Route: 065
     Dates: start: 20190906, end: 20191006
  3. ZOFRAN [Concomitant]
     Active Substance: ONDANSETRON HYDROCHLORIDE
     Dosage: UNK
     Route: 065
     Dates: start: 20190906, end: 20191006
  4. SINGULAIR [Concomitant]
     Active Substance: MONTELUKAST SODIUM
     Indication: ASTHMA
     Dosage: UNK
     Route: 065
     Dates: start: 20190912, end: 20190913
  5. ACYCLOVIR. [Concomitant]
     Active Substance: ACYCLOVIR
     Indication: HERPES ZOSTER
     Dosage: UNK
     Route: 065
     Dates: start: 20190906
  6. ALBUTEROL. [Concomitant]
     Active Substance: ALBUTEROL
     Indication: ASTHMA
     Dosage: UNK
     Route: 065
     Dates: start: 20190906
  7. FLUTICASONE FUROATE [Concomitant]
     Active Substance: FLUTICASONE FUROATE
     Indication: ASTHMA
     Dosage: UNK
     Route: 065
     Dates: start: 20190906
  8. POTASSIUM [Concomitant]
     Active Substance: POTASSIUM
     Indication: HYPERTENSION
     Dosage: UNK
     Route: 065
     Dates: start: 20190906
  9. MAGNESIUM [Concomitant]
     Active Substance: MAGNESIUM
     Indication: GASTROOESOPHAGEAL REFLUX DISEASE
     Dosage: UNK
     Route: 065
     Dates: start: 20190906
  10. APRESOLINE HYDROCHLORIDE [Concomitant]
     Active Substance: HYDRALAZINE HYDROCHLORIDE
     Indication: HYPERTENSION
     Route: 065
     Dates: start: 20190912, end: 20190913
  11. ZOFRAN [Concomitant]
     Active Substance: ONDANSETRON HYDROCHLORIDE
     Dosage: UNK
     Route: 065
  12. RESTORIL [Concomitant]
     Active Substance: TEMAZEPAM
     Indication: INSOMNIA
     Route: 065
     Dates: start: 20190912, end: 20190913
  13. NICODERM CQ [Concomitant]
     Active Substance: NICOTINE
     Indication: TOBACCO USER
     Dosage: UNK
     Route: 065
     Dates: start: 20190912, end: 20190913
  14. NORVASC [Concomitant]
     Active Substance: AMLODIPINE BESYLATE
     Indication: HYPERTENSION
     Route: 065
     Dates: start: 20190912, end: 20190913
  15. SYMBICORT [Concomitant]
     Active Substance: BUDESONIDE\FORMOTEROL FUMARATE DIHYDRATE
     Indication: ASTHMA
     Route: 065
     Dates: start: 20190912, end: 20190913
  16. PROVENTIL [Concomitant]
     Active Substance: ALBUTEROL
     Indication: ASTHMA
     Route: 065
     Dates: start: 20190912, end: 20190913
  17. ALUMINIUM [Concomitant]
     Active Substance: ALUMINUM
     Indication: GASTROOESOPHAGEAL REFLUX DISEASE
     Dosage: UNK
     Route: 065
     Dates: start: 20190912, end: 20190913
  18. POTASSIUM [Concomitant]
     Active Substance: POTASSIUM
     Indication: PRODUCT USED FOR UNKNOWN INDICATION
  19. RITALIN [Concomitant]
     Active Substance: METHYLPHENIDATE HYDROCHLORIDE
     Indication: FATIGUE
     Dosage: UNK
     Route: 065
     Dates: start: 20181101
  20. VITAMIN D [Concomitant]
     Active Substance: VITAMIN D NOS
     Indication: VITAMIN D DECREASED
     Dosage: UNK
     Route: 065
     Dates: start: 20171226
  21. BROMPHENIRAMINE [Concomitant]
     Active Substance: BROMPHENIRAMINE
     Indication: ASTHMA
     Dosage: UNK
     Route: 065
     Dates: start: 20190906
  22. ZANTAC [Concomitant]
     Active Substance: RANITIDINE HYDROCHLORIDE
     Indication: GASTROOESOPHAGEAL REFLUX DISEASE
     Dosage: UNK
     Route: 065
     Dates: start: 20190906
  23. DM [Concomitant]
     Indication: ASTHMA
     Dosage: UNK
     Route: 065
     Dates: start: 20190906
  24. NACL [Concomitant]
     Active Substance: SODIUM CHLORIDE
     Indication: BLOOD POTASSIUM DECREASED
     Dosage: UNK
     Route: 065
     Dates: start: 20190906, end: 20191006
  25. NICODERM CQ [Concomitant]
     Active Substance: NICOTINE
     Dosage: UNK
     Route: 065
     Dates: start: 20190906, end: 20190907
  26. PANTOPRAZOLE [Concomitant]
     Active Substance: PANTOPRAZOLE
     Indication: GASTROOESOPHAGEAL REFLUX DISEASE
     Dosage: UNK
     Route: 065
     Dates: start: 20190906, end: 20190913
  27. ZANAFLEX [Concomitant]
     Active Substance: TIZANIDINE HYDROCHLORIDE
     Indication: PAIN IN EXTREMITY
     Dosage: UNK
     Route: 065
     Dates: start: 20190802
  28. LOSARTAN POTASSIUM+HYDROCHLOROTHIAZIDE [Suspect]
     Active Substance: HYDROCHLOROTHIAZIDE\LOSARTAN POTASSIUM
     Indication: HYPERTENSION
     Dosage: UNK
     Route: 065
     Dates: start: 20190701, end: 20190906
  29. CARAFATE [Concomitant]
     Active Substance: SUCRALFATE
     Dosage: UNK
     Route: 065
     Dates: start: 20190906
  30. MOBIC [Concomitant]
     Active Substance: MELOXICAM
     Indication: HEADACHE
     Dosage: UNK
     Route: 065
     Dates: start: 20190716
  31. ZOFRAN [Concomitant]
     Active Substance: ONDANSETRON HYDROCHLORIDE
     Indication: GASTROOESOPHAGEAL REFLUX DISEASE
     Dosage: UNK
     Route: 065
     Dates: start: 20190912, end: 20190913
  32. PHENERGAN [Concomitant]
     Active Substance: PROMETHAZINE HYDROCHLORIDE
     Indication: NAUSEA
     Route: 065
     Dates: start: 20190912, end: 20190913
  33. REGLAN [Concomitant]
     Active Substance: METOCLOPRAMIDE HYDROCHLORIDE
     Indication: GASTROOESOPHAGEAL REFLUX DISEASE
     Route: 065
     Dates: start: 20190912, end: 20190913
  34. NEXIUM [Concomitant]
     Active Substance: ESOMEPRAZOLE MAGNESIUM
     Indication: GASTROOESOPHAGEAL REFLUX DISEASE
     Dosage: UNK
     Route: 065
     Dates: start: 20111001
  35. DULOXETINE. [Concomitant]
     Active Substance: DULOXETINE
     Indication: ANXIETY
  36. SIMETHICONE (DIMETHICONE) [Concomitant]
     Active Substance: DIMETHICONE
     Indication: GASTROOESOPHAGEAL REFLUX DISEASE
     Dosage: UNK
     Route: 065
     Dates: start: 20190906
  37. PSEUDOEPHEDRIN [Concomitant]
     Active Substance: PSEUDOEPHEDRINE
     Indication: ASTHMA
     Dosage: UNK
     Route: 065
     Dates: start: 20190906
  38. CO-DIOVAN [Suspect]
     Active Substance: HYDROCHLOROTHIAZIDE\VALSARTAN
     Indication: HYPERTENSION
     Dosage: UNK
     Route: 065
     Dates: start: 20190906
  39. AMLODIPINE [Concomitant]
     Active Substance: AMLODIPINE BESYLATE
     Indication: HYPERTENSION
     Dosage: UNK
     Route: 065
     Dates: start: 20161122, end: 20190906
  40. TEMAZEPAM. [Concomitant]
     Active Substance: TEMAZEPAM
     Indication: INSOMNIA
     Dosage: UNK
     Route: 065
     Dates: start: 20190912, end: 20190913
  41. POTASSIUM CHLORIDE. [Concomitant]
     Active Substance: POTASSIUM CHLORIDE
     Indication: HYPOKALAEMIA
     Dosage: UNK
     Route: 065
     Dates: start: 20190906, end: 20191006
  42. AMBIEN [Concomitant]
     Active Substance: ZOLPIDEM TARTRATE
     Indication: INSOMNIA
     Dosage: UNK
     Route: 065
     Dates: start: 20110214
  43. HCTZ [Concomitant]
     Active Substance: HYDROCHLOROTHIAZIDE
     Indication: HYPERTENSION
     Dosage: UNK
     Route: 065
     Dates: start: 20190701
  44. CYMBALTA [Concomitant]
     Active Substance: DULOXETINE HYDROCHLORIDE
     Indication: ANXIETY
     Route: 065
     Dates: start: 20190912, end: 20190913
  45. VILANTEROL [Concomitant]
     Active Substance: VILANTEROL TRIFENATATE
     Indication: ASTHMA
     Dosage: UNK
     Route: 065
     Dates: start: 20190906
  46. VITAMIN B COMPLEX [Concomitant]
     Active Substance: CYANOCOBALAMIN\DEXPANTHENOL\NIACINAMIDE\PYRIDOXINE HYDROCHLORIDE\RIBOFLAVIN 5^-PHOSPHATE SODIUM\THIAMINE HYDROCHLORIDE\VITAMIN B COMPLEX
     Indication: SUPPLEMENTATION THERAPY
     Dosage: UNK
     Route: 065
     Dates: start: 20190716
  47. XANAX [Concomitant]
     Active Substance: ALPRAZOLAM
     Indication: ANXIETY
     Dosage: UNK
     Route: 065
     Dates: start: 20140605
  48. DULOXETINE. [Concomitant]
     Active Substance: DULOXETINE
     Indication: DEPRESSION
     Dosage: UNK
     Route: 065
     Dates: start: 20190716
  49. MAYZENT [Suspect]
     Active Substance: SIPONIMOD
     Indication: RELAPSING MULTIPLE SCLEROSIS
     Dosage: 0.25 MG, QD
     Route: 048
     Dates: start: 20190814
  50. PROMETHAZINE HYDROCHLORIDE. [Concomitant]
     Active Substance: PROMETHAZINE HYDROCHLORIDE
     Indication: NAUSEA
     Dosage: UNK
     Route: 065
     Dates: start: 20190912, end: 20190913
  51. PROTONIX [Concomitant]
     Active Substance: PANTOPRAZOLE SODIUM
     Indication: GASTROOESOPHAGEAL REFLUX DISEASE
     Dosage: UNK
     Route: 065
     Dates: start: 20190906
  52. DEXILANT [Concomitant]
     Active Substance: DEXLANSOPRAZOLE
     Indication: GASTROOESOPHAGEAL REFLUX DISEASE
     Dosage: UNK
     Route: 065
     Dates: start: 20190906
  53. CYMBALTA [Concomitant]
     Active Substance: DULOXETINE HYDROCHLORIDE
     Indication: DEPRESSION
  54. PULMICORT TURBUHALER [Concomitant]
     Active Substance: BUDESONIDE
     Indication: ASTHMA
     Route: 065
     Dates: start: 20190912, end: 20190913
  55. XYLOCAINE [Concomitant]
     Active Substance: LIDOCAINE HYDROCHLORIDE
     Indication: HERPES ZOSTER
     Dosage: UNK
     Route: 065
     Dates: start: 20190906
  56. CHLORZOXAZONE. [Concomitant]
     Active Substance: CHLORZOXAZONE
     Indication: PAIN IN EXTREMITY
     Dosage: UNK
     Route: 065
     Dates: start: 20190906
  57. FORMOTEROL [Concomitant]
     Active Substance: FORMOTEROL
     Indication: ASTHMA
     Dosage: UNK
     Route: 065
     Dates: start: 20190906

REACTIONS (1)
  - Non-cardiac chest pain [Recovered/Resolved]

NARRATIVE: CASE EVENT DATE: 20190912
